FAERS Safety Report 23728976 (Version 2)
Quarter: 2024Q2

REPORT INFORMATION
  Report Type: Report from Study
  Country: MX (occurrence: None)
  Receive Date: 20240410
  Receipt Date: 20240508
  Transmission Date: 20240715
  Serious: Yes (Hospitalization, Other)
  Sender: FDA-Public Use
  Company Number: 2023A060879

PATIENT
  Age: 10136 Day
  Sex: Female
  Weight: 50 kg

DRUGS (3)
  1. LYNPARZA [Suspect]
     Active Substance: OLAPARIB
     Indication: Ovarian cancer
     Dosage: ONE TABLET WAS ADMINISTERED IN THE MORNING AND ONE AT NIGHT
     Route: 048
     Dates: start: 202003, end: 202208
  2. FASLODEX [Suspect]
     Active Substance: FULVESTRANT
     Indication: Ovarian cancer
     Dosage: 500 MG, ON DAY ONE OF TREATMENT, 250 MG ON DAY 15 OF TREATMENT, 250 MG ON DAY 29 OF TREATMENT, CO...
     Route: 030
     Dates: start: 202310, end: 2023
  3. MEGESTROL ACETATE [Concomitant]
     Active Substance: MEGESTROL ACETATE
     Indication: Appetite disorder

REACTIONS (9)
  - Ovarian cancer recurrent [Unknown]
  - Oncologic complication [Unknown]
  - Rectal cancer [Unknown]
  - Intestinal obstruction [Unknown]
  - Metastatic neoplasm [Unknown]
  - Diarrhoea [Unknown]
  - Acne [Unknown]
  - Off label use [Unknown]
  - Drug ineffective [Unknown]

NARRATIVE: CASE EVENT DATE: 20200801
